FAERS Safety Report 17709511 (Version 1)
Quarter: 2020Q2

REPORT INFORMATION
  Report Type: Spontaneous
  Country: ES (occurrence: ES)
  Receive Date: 20200427
  Receipt Date: 20200427
  Transmission Date: 20200714
  Serious: Yes (Hospitalization)
  Sender: FDA-Public Use
  Company Number: ES-TEVA-2020-ES-1226645

PATIENT
  Age: 72 Year
  Sex: Male

DRUGS (2)
  1. FENITOINA (1334A) [Suspect]
     Active Substance: PHENYTOIN
     Dosage: 125 MG EVERY 8 HOURS
     Route: 042
     Dates: start: 20190607, end: 20190607
  2. TOPIRAMATO (7245A) [Suspect]
     Active Substance: TOPIRAMATE
     Dosage: 100 MG DAY
     Route: 048
     Dates: start: 20190607, end: 20190610

REACTIONS (1)
  - Pancreatitis acute [Recovered/Resolved]

NARRATIVE: CASE EVENT DATE: 20190608
